FAERS Safety Report 9622562 (Version 2)
Quarter: 2013Q4

REPORT INFORMATION
  Report Type: Spontaneous
  Country: US (occurrence: US)
  Receive Date: 20131015
  Receipt Date: 20131015
  Transmission Date: 20140711
  Serious: Yes (Other)
  Sender: FDA-Public Use
  Company Number: US-INCYTE CORPORATION-2013IN001960

PATIENT
  Age: 65 Year
  Sex: Female
  Weight: 70.3 kg

DRUGS (29)
  1. JAKAFI [Suspect]
     Indication: MYELOFIBROSIS
     Dosage: 15 MG, BID
     Route: 048
     Dates: start: 20121001
  2. JAKAFI [Suspect]
     Indication: SPLENOMEGALY
     Dosage: 20 MG, BID
     Route: 048
     Dates: start: 20121108
  3. JAKAFI [Suspect]
     Dosage: 15 MG, BID
     Route: 048
     Dates: start: 20130903
  4. IBUPROFEN [Concomitant]
     Dosage: UNK
  5. NEXIUM [Concomitant]
     Dosage: UNK
     Dates: start: 20120626
  6. BENZONATATE [Concomitant]
     Dosage: 100 MG, QID
     Dates: start: 20120626
  7. ASPIRIN [Concomitant]
     Dosage: 81 MG, QD
     Route: 048
     Dates: start: 20121220
  8. BILBERRY [Concomitant]
     Dosage: 100 MG, QD
     Dates: start: 20120626
  9. CALCIUM [Concomitant]
     Dosage: 500 MG, QD
     Route: 048
     Dates: start: 20120626
  10. CITALOPRAM [Concomitant]
     Dosage: 10 MG, QD
     Route: 048
     Dates: start: 20120626
  11. FLUOCINONIDE 0.05% TOPICAL CREAM [Concomitant]
     Dosage: QID PRN
     Route: 061
     Dates: start: 20130502
  12. FOLIC ACID [Concomitant]
     Dosage: 1 MG, QD
     Route: 048
     Dates: start: 20120626
  13. FUROSEMIDE [Concomitant]
     Dosage: 40 MG Q AM, 20 MG QPM
     Dates: start: 20120719
  14. GLUCOSAMINE [Concomitant]
     Dosage: 2000 MG, QD
     Dates: start: 20120626
  15. IRATROPIUM [Concomitant]
     Dosage: 2 APRAYS QID
     Dates: start: 20121011
  16. LIDOCAINE-DIPHENHYD-AL-MAG-SIM [Concomitant]
     Dosage: SWISH AND SWALLOW BID PRN
     Dates: start: 20130502
  17. LUMIGAN [Concomitant]
     Dosage: QD
     Route: 047
     Dates: start: 20120626
  18. MUPIROCIN [Concomitant]
     Dosage: APPLY TID
     Dates: start: 20130502
  19. NYSTATIN [Concomitant]
     Dosage: UNK
     Dates: start: 20121025
  20. OCCUGARD [Concomitant]
     Dosage: QD
     Dates: start: 20120626
  21. ST. JOHNS WORT [Concomitant]
     Dosage: 300 MG, QD
     Dates: start: 20120626
  22. TEMAZEPAM [Concomitant]
     Dosage: 15 MG, QD
     Dates: start: 20130502
  23. THYROID GLANDULAR [Concomitant]
     Dosage: 200 MG, QD
     Dates: start: 20121011
  24. VESICARE [Concomitant]
     Dosage: 10 MG, QD
     Dates: start: 20130221
  25. VITAMIN B-12 [Concomitant]
     Dosage: 250 MCG, QD
     Dates: start: 20130627
  26. VITAMIN B - 6 [Concomitant]
     Dosage: 100 MG, QD
     Dates: start: 20130627
  27. VITAMIN D3 [Concomitant]
     Dosage: 2000 UT, QD
     Dates: start: 20130627
  28. VITAMIN E [Concomitant]
     Dosage: 800 IU, QD
     Dates: start: 20120626
  29. WELLBUTRIN [Concomitant]
     Dosage: 150 MG, QD
     Dates: start: 20120626

REACTIONS (6)
  - Thrombocytosis [Not Recovered/Not Resolved]
  - Injury [Recovering/Resolving]
  - Cheilitis [Recovering/Resolving]
  - Glossitis [Recovering/Resolving]
  - Nausea [Unknown]
  - Headache [Recovering/Resolving]
